FAERS Safety Report 20830830 (Version 1)
Quarter: 2022Q2

REPORT INFORMATION
  Report Type: Spontaneous
  Country: JP (occurrence: JP)
  Receive Date: 20220515
  Receipt Date: 20220515
  Transmission Date: 20220721
  Serious: Yes (Other)
  Sender: FDA-Public Use
  Company Number: JP-BRISTOL-MYERS SQUIBB COMPANY-2022-010473

PATIENT

DRUGS (15)
  1. OPDIVO [Suspect]
     Active Substance: NIVOLUMAB
     Indication: Non-small cell lung cancer recurrent
     Route: 041
     Dates: start: 20220308
  2. OPDIVO [Suspect]
     Active Substance: NIVOLUMAB
     Dosage: #1
     Route: 041
  3. OPDIVO [Suspect]
     Active Substance: NIVOLUMAB
  4. YERVOY [Suspect]
     Active Substance: IPILIMUMAB
     Indication: Non-small cell lung cancer recurrent
     Dosage: 1 MG/KG
     Route: 041
     Dates: start: 20220308
  5. YERVOY [Suspect]
     Active Substance: IPILIMUMAB
     Dosage: #1
     Route: 041
  6. YERVOY [Suspect]
     Active Substance: IPILIMUMAB
  7. MORPHINE HYDROCHLORIDE [Suspect]
     Active Substance: MORPHINE HYDROCHLORIDE
     Dosage: #1
  8. ACETAMINOPHEN [Suspect]
     Active Substance: ACETAMINOPHEN
     Dosage: #1
  9. ACETAMINOPHEN [Suspect]
     Active Substance: ACETAMINOPHEN
     Indication: Product used for unknown indication
     Dosage: UNK
     Route: 065
  10. ACETAMINOPHEN [Suspect]
     Active Substance: ACETAMINOPHEN
  11. ACETAMINOPHEN [Suspect]
     Active Substance: ACETAMINOPHEN
  12. CARBOPLATIN [Suspect]
     Active Substance: CARBOPLATIN
     Indication: Non-small cell lung cancer recurrent
     Dates: start: 20220308
  13. CARBOPLATIN [Suspect]
     Active Substance: CARBOPLATIN
  14. PACLITAXEL [Suspect]
     Active Substance: PACLITAXEL
     Indication: Non-small cell lung cancer recurrent
     Dates: start: 20220308
  15. PACLITAXEL [Suspect]
     Active Substance: PACLITAXEL

REACTIONS (5)
  - Hepatic function abnormal [Unknown]
  - Rash [Unknown]
  - Drug-induced liver injury [Unknown]
  - Drug eruption [Unknown]
  - Immune-mediated dermatitis [Unknown]

NARRATIVE: CASE EVENT DATE: 20220316
